FAERS Safety Report 5856832-6 (Version None)
Quarter: 2008Q3

REPORT INFORMATION
  Report Type: 
  Country: None (occurrence: None)
  Receive Date: 20080825
  Receipt Date: 20080814
  Transmission Date: 20090109
  Serious: Yes (Death)
  Sender: FDA-Public Use
  Company Number: GB-GENENTECH-265586

PATIENT
  Age: 73 Year
  Sex: Male

DRUGS (1)
  1. MABTHERA [Suspect]
     Indication: DERMATOMYOSITIS
     Dosage: UNK
     Dates: start: 20070710, end: 20070727

REACTIONS (3)
  - BONE MARROW DISORDER [None]
  - BRONCHOPNEUMONIA [None]
  - DERMATOMYOSITIS [None]
